FAERS Safety Report 7913059-1 (Version None)
Quarter: 2011Q4

REPORT INFORMATION
  Report Type: 
  Country: None (occurrence: None)
  Receive Date: 20111114
  Receipt Date: 20111029
  Transmission Date: 20120403
  Serious: Yes (Hospitalization)
  Sender: FDA-Public Use
  Company Number: US-BAYER-201026309NA

PATIENT
  Age: 43 Year
  Sex: Female
  Weight: 63.492 kg

DRUGS (4)
  1. YAZ [Suspect]
     Indication: MENSTRUAL CYCLE MANAGEMENT
     Dosage: 1 DF, QD
     Route: 048
     Dates: start: 20061010, end: 20070124
  2. YASMIN [Suspect]
     Indication: DYSFUNCTIONAL UTERINE BLEEDING
     Dosage: 1 DF, QD
     Route: 048
     Dates: start: 20070124, end: 20070201
  3. YAZ [Suspect]
     Indication: DYSFUNCTIONAL UTERINE BLEEDING
  4. DIETARY SUPPLEMENTS [Concomitant]

REACTIONS (1)
  - PULMONARY EMBOLISM [None]
